FAERS Safety Report 9244643 (Version 2)
Quarter: 2013Q2

REPORT INFORMATION
  Report Type: Spontaneous
  Country: US (occurrence: None)
  Receive Date: 20121123
  Receipt Date: 20130225
  Transmission Date: 20140414
  Serious: Yes (Other)
  Sender: FDA-Public Use
  Company Number: 362388

PATIENT
  Age: 50 Year
  Sex: Female

DRUGS (7)
  1. VICTOZA (LIRAGLUTIDE) SOLUTION FOR INJECTION, 6MG/ML [Suspect]
     Indication: TYPE 2 DIABETES MELLITUS
     Route: 058
  2. ADVAIR (FLUTICASONE PROPIONATE, SALMETEROL XINAFOATE) [Concomitant]
  3. LEXAPRO (ESCITALOPRAM OXALATE) [Concomitant]
  4. METFORMIN (METFORMIN) [Concomitant]
  5. PROTONIX (PANTOPRAZOLE SODIUM SESQUIHYDRATE) [Concomitant]
  6. SINGULAIR [Concomitant]
  7. NASACORT (TRIAMCINOLONE ACETONIDE) [Concomitant]

REACTIONS (2)
  - Device breakage [None]
  - Blood glucose increased [None]
